FAERS Safety Report 12037554 (Version 1)
Quarter: 2016Q1

REPORT INFORMATION
  Report Type: Spontaneous
  Country: PH (occurrence: PH)
  Receive Date: 20160208
  Receipt Date: 20160208
  Transmission Date: 20160526
  Serious: Yes (Hospitalization)
  Sender: FDA-Public Use
  Company Number: PHHY2016PH000541

PATIENT
  Age: 81 Year
  Sex: Female

DRUGS (4)
  1. ULTIBRO BREEZHALER [Suspect]
     Active Substance: GLYCOPYRRONIUM\INDACATEROL
     Indication: CHRONIC OBSTRUCTIVE PULMONARY DISEASE
     Dosage: UNK
     Route: 055
  2. ULTIBRO BREEZHALER [Suspect]
     Active Substance: GLYCOPYRRONIUM\INDACATEROL
     Dosage: 1 DF, ONCE/SINGLE
     Route: 048
  3. AMLODIPINE [Concomitant]
     Active Substance: AMLODIPINE BESYLATE
     Indication: PRODUCT USED FOR UNKNOWN INDICATION
     Dosage: UNK
     Route: 065
  4. CLOPIDOGREL [Concomitant]
     Active Substance: CLOPIDOGREL BISULFATE
     Indication: PRODUCT USED FOR UNKNOWN INDICATION
     Dosage: UNK
     Route: 065

REACTIONS (5)
  - Incorrect route of drug administration [Unknown]
  - Decreased appetite [Recovered/Resolved]
  - Pyelonephritis acute [Recovered/Resolved]
  - Pyrexia [Recovered/Resolved]
  - Abdominal pain upper [Recovered/Resolved]
